FAERS Safety Report 5188183-X (Version None)
Quarter: 2006Q4

REPORT INFORMATION
  Report Type: 
  Country: None (occurrence: None)
  Receive Date: 20061221
  Receipt Date: 20061211
  Transmission Date: 20070319
  Serious: Yes (Other)
  Sender: FDA-Public Use
  Company Number: PHEH2006US15078

PATIENT
  Sex: Male

DRUGS (5)
  1. ZOMETA [Suspect]
     Indication: METASTASES TO BONE
     Dosage: MONTHLY
     Dates: start: 20040401
  2. LUPRON [Concomitant]
     Dosage: EVERY 3 MONTHS
  3. CASODEX [Concomitant]
     Dosage: UNK, QD
  4. ZOCOR [Concomitant]
  5. TOPROL-XL [Concomitant]

REACTIONS (9)
  - BONE DISORDER [None]
  - ENDODONTIC PROCEDURE [None]
  - HAEMATOCRIT DECREASED [None]
  - HAEMOGLOBIN DECREASED [None]
  - JAW DISORDER [None]
  - LOOSE TOOTH [None]
  - RED BLOOD CELL COUNT ABNORMAL [None]
  - SWELLING [None]
  - TOOTHACHE [None]
